FAERS Safety Report 18857725 (Version 1)
Quarter: 2021Q1

REPORT INFORMATION
  Report Type: Spontaneous
  Country: US (occurrence: US)
  Receive Date: 20210208
  Receipt Date: 20210208
  Transmission Date: 20210420
  Serious: No
  Sender: FDA-Public Use
  Company Number: US-SA-2021SA037316

PATIENT
  Age: 63 Year
  Sex: Female

DRUGS (3)
  1. VITAMIN D NOS [Concomitant]
     Active Substance: VITAMIN D NOS
     Dosage: 10 UG
  2. AUBAGIO [Suspect]
     Active Substance: TERIFLUNOMIDE
     Indication: MULTIPLE SCLEROSIS
     Dosage: 14 MG, QD
     Route: 048
     Dates: start: 202012
  3. OXYBUTYNIN CHLORIDE. [Concomitant]
     Active Substance: OXYBUTYNIN CHLORIDE
     Dosage: UNK

REACTIONS (1)
  - Depressed mood [Unknown]
